FAERS Safety Report 15326466 (Version 1)
Quarter: 2018Q3

REPORT INFORMATION
  Report Type: Report from Study
  Country: US (occurrence: US)
  Receive Date: 20180828
  Receipt Date: 20180828
  Transmission Date: 20181010
  Serious: No
  Sender: FDA-Public Use
  Company Number: PHEH2018US034307

PATIENT
  Age: 19 Year
  Sex: Female

DRUGS (1)
  1. ONDANSETRON [Suspect]
     Active Substance: ONDANSETRON
     Indication: ABDOMINAL DISCOMFORT
     Dosage: 4 MG, QID
     Route: 048
     Dates: start: 20180411, end: 20180501

REACTIONS (3)
  - Vomiting [Unknown]
  - Maternal exposure timing unspecified [Unknown]
  - Headache [Unknown]

NARRATIVE: CASE EVENT DATE: 20180411
